FAERS Safety Report 14689526 (Version 1)
Quarter: 2018Q1

REPORT INFORMATION
  Report Type: Spontaneous
  Country: US (occurrence: US)
  Receive Date: 20180328
  Receipt Date: 20180328
  Transmission Date: 20180509
  Serious: Yes (Hospitalization)
  Sender: FDA-Public Use
  Company Number: US-WARNER_CHILCOTT-CIP10002365

PATIENT
  Age: 76 Year
  Sex: Female

DRUGS (5)
  1. PRAVACHOL [Concomitant]
     Active Substance: PRAVASTATIN SODIUM
     Indication: BLOOD CHOLESTEROL ABNORMAL
     Route: 065
  2. NORVASC [Concomitant]
     Active Substance: AMLODIPINE BESYLATE
     Indication: BLOOD PRESSURE ABNORMAL
     Route: 048
  3. ACTONEL [Suspect]
     Active Substance: RISEDRONATE SODIUM
     Indication: BONE LOSS
     Dosage: 35 MG, Q WEEK
     Route: 048
     Dates: start: 2004, end: 2010
  4. TOPROL XL [Concomitant]
     Active Substance: METOPROLOL SUCCINATE
     Indication: CARDIAC DISORDER
     Dosage: UNK
     Route: 048
     Dates: start: 2010, end: 2014
  5. CALCIUM [Concomitant]
     Active Substance: CALCIUM
     Indication: PRODUCT USED FOR UNKNOWN INDICATION
     Route: 065

REACTIONS (14)
  - Abdominal pain upper [Recovered/Resolved]
  - Diarrhoea [Recovered/Resolved]
  - Mental impairment [Recovered/Resolved]
  - Neck pain [Recovering/Resolving]
  - Clostridium difficile infection [Recovered/Resolved]
  - Thrombosis [Recovered/Resolved]
  - Hallucination [Recovered/Resolved]
  - Feeling abnormal [Recovering/Resolving]
  - Abdominal distension [Recovered/Resolved]
  - Escherichia infection [Recovered/Resolved]
  - Fibromyalgia [Recovered/Resolved]
  - Reading disorder [Recovered/Resolved]
  - Nail infection [Recovered/Resolved]
  - Pain [Recovered/Resolved]

NARRATIVE: CASE EVENT DATE: 2004
